FAERS Safety Report 8748383 (Version 3)
Quarter: 2012Q4

REPORT INFORMATION
  Report Type: Report from Study
  Country: AT (occurrence: AT)
  Receive Date: 20120827
  Receipt Date: 20120906
  Transmission Date: 20130627
  Serious: Yes (Death)
  Sender: FDA-Public Use
  Company Number: AT-ROCHE-1105585

PATIENT
  Age: 97 Year
  Sex: Female
  Weight: 71 kg

DRUGS (10)
  1. VISMODEGIB [Suspect]
     Indication: HEAD AND NECK CANCER
     Route: 048
     Dates: start: 20120228, end: 20120719
  2. DILTIAZEM [Concomitant]
     Indication: HYPERTENSION
     Route: 065
     Dates: start: 200804, end: 20120723
  3. THROMBO ASS [Concomitant]
     Indication: PERIPHERAL ARTERIAL OCCLUSIVE DISEASE
     Route: 065
     Dates: start: 200201
  4. THROMBO ASS [Concomitant]
     Indication: CEREBRAL INFARCTION
     Route: 065
     Dates: start: 200204
  5. DIAMICRON [Concomitant]
     Indication: TYPE 2 DIABETES MELLITUS
     Route: 065
     Dates: start: 200604
  6. LASIX [Concomitant]
     Indication: HYPERTENSION
     Route: 065
     Dates: start: 200804
  7. NEXIUM [Concomitant]
     Indication: PROPHYLAXIS
     Route: 065
     Dates: start: 200204
  8. TRAMAL [Concomitant]
     Indication: MUSCLE SPASMS
     Route: 065
     Dates: start: 20120513, end: 20120514
  9. TRAMAL [Concomitant]
     Route: 065
     Dates: start: 20120615, end: 20120615
  10. MAGNOSOLV - GRANULAT [Concomitant]
     Indication: MUSCLE SPASMS
     Route: 065
     Dates: start: 20120514, end: 20120705

REACTIONS (2)
  - Cerebrovascular accident [Fatal]
  - Pneumonia [Fatal]
